FAERS Safety Report 10223442 (Version 1)
Quarter: 2014Q2

REPORT INFORMATION
  Report Type: Spontaneous
  Country: US (occurrence: None)
  Receive Date: 20140606
  Receipt Date: 20140606
  Transmission Date: 20141212
  Serious: Yes (Life-Threatening)
  Sender: FDA-Public Use
  Company Number: None

PATIENT
  Age: 75 Year
  Sex: Female

DRUGS (8)
  1. AMIODARONE 150 MG/3ML UNABLE TO CONFIRM [Suspect]
     Indication: ATRIAL FIBRILLATION
     Route: 042
     Dates: start: 20131205, end: 20131205
  2. HEPARIN INFUSION [Concomitant]
  3. POTASSIUM CHLORIDE [Concomitant]
  4. ASA [Concomitant]
  5. CARVEDILOL [Concomitant]
  6. ESCITALOPRAM [Concomitant]
  7. FUROSEMIDE INJECTION [Concomitant]
  8. HEPARIN [Concomitant]

REACTIONS (3)
  - Pruritus [None]
  - Emotional distress [None]
  - Anaphylactoid reaction [None]
